FAERS Safety Report 4619563-6 (Version None)
Quarter: 2005Q1

REPORT INFORMATION
  Report Type: 
  Country: None (occurrence: None)
  Receive Date: 20050318
  Receipt Date: 20050318
  Transmission Date: 20050727
  Serious: Yes (Hospitalization)
  Sender: FDA-Public Use
  Company Number: None

PATIENT
  Sex: Female
  Weight: 54.8852 kg

DRUGS (6)
  1. COUMADIN [Suspect]
     Indication: CARDIAC DISORDER
     Dosage: 7.5 MG PO QD [PRIOR TO ADMISSION]
     Route: 048
  2. LIPITOR [Concomitant]
  3. ASPIRIN [Concomitant]
  4. PRILOSEC [Concomitant]
  5. DILTIAZEM [Concomitant]
  6. FOLGARD [Concomitant]

REACTIONS (2)
  - SKIN HAEMORRHAGE [None]
  - SKIN LACERATION [None]
